FAERS Safety Report 6630445-0 (Version None)
Quarter: 2010Q1

REPORT INFORMATION
  Report Type: 
  Country: None (occurrence: None)
  Receive Date: 20100311
  Receipt Date: 20090622
  Transmission Date: 20100710
  Serious: No
  Sender: FDA-Public Use
  Company Number: US-BIOGENIDEC-2009BI019070

PATIENT
  Age: 37 Year
  Sex: Female

DRUGS (2)
  1. AVONEX [Suspect]
     Indication: MULTIPLE SCLEROSIS
     Route: 030
     Dates: start: 19960101, end: 19970101
  2. AVONEX [Suspect]
     Route: 030
     Dates: start: 20090612

REACTIONS (5)
  - INFLUENZA LIKE ILLNESS [None]
  - MONOPLEGIA [None]
  - MUSCLE SPASMS [None]
  - PAIN [None]
  - VOMITING [None]
